FAERS Safety Report 10632973 (Version 2)
Quarter: 2014Q4

REPORT INFORMATION
  Report Type: Spontaneous
  Country: US (occurrence: US)
  Receive Date: 20141205
  Receipt Date: 20141205
  Transmission Date: 20150529
  Serious: Yes (Hospitalization)
  Sender: FDA-Public Use
  Company Number: US-BRISTOL-MYERS SQUIBB COMPANY-21658406

PATIENT
  Age: 63 Year
  Sex: Male
  Weight: 118 kg

DRUGS (8)
  1. MULTIVITAMIN [Concomitant]
     Active Substance: VITAMINS
  2. LIPITOR [Concomitant]
     Active Substance: ATORVASTATIN CALCIUM
  3. ASPIRIN. [Concomitant]
     Active Substance: ASPIRIN
  4. COLACE [Concomitant]
     Active Substance: DOCUSATE SODIUM
  5. GABAPENTIN. [Concomitant]
     Active Substance: GABAPENTIN
  6. PROPRANOLOL [Concomitant]
     Active Substance: PROPRANOLOL\PROPRANOLOL HYDROCHLORIDE
  7. GLUCOSAMINE [Concomitant]
     Active Substance: GLUCOSAMINE
  8. DASATINIB [Suspect]
     Active Substance: DASATINIB
     Indication: CHRONIC MYELOID LEUKAEMIA
     Dates: start: 200708

REACTIONS (1)
  - Cellulitis [Unknown]

NARRATIVE: CASE EVENT DATE: 2011
